FAERS Safety Report 12927059 (Version 3)
Quarter: 2016Q4

REPORT INFORMATION
  Report Type: Spontaneous
  Country: FR (occurrence: FR)
  Receive Date: 20161109
  Receipt Date: 20161227
  Transmission Date: 20170207
  Serious: Yes (Life-Threatening, Hospitalization, Congenital Anomaly)
  Sender: FDA-Public Use
  Company Number: FR-JNJFOC-20161103552

PATIENT
  Sex: Female
  Weight: 3.95 kg

DRUGS (3)
  1. IMUREL [Suspect]
     Active Substance: AZATHIOPRINE SODIUM
     Indication: CROHN^S DISEASE
     Route: 064
     Dates: start: 201312
  2. REMICADE [Suspect]
     Active Substance: INFLIXIMAB
     Indication: CROHN^S DISEASE
     Route: 064
     Dates: start: 201508, end: 201512
  3. IMUREL [Suspect]
     Active Substance: AZATHIOPRINE SODIUM
     Indication: CROHN^S DISEASE
     Route: 064
     Dates: start: 201508, end: 20160806

REACTIONS (6)
  - Lymphocytopenia neonatal [Recovered/Resolved]
  - Congenital hypogammaglobulinaemia [Unknown]
  - Foetal exposure during pregnancy [Recovered/Resolved]
  - Histiocytosis haematophagic [Unknown]
  - Left ventricular hypertrophy [Not Recovered/Not Resolved]
  - Congenital toxoplasmosis [Recovered/Resolved]

NARRATIVE: CASE EVENT DATE: 201508
